FAERS Safety Report 18125402 (Version 3)
Quarter: 2020Q3

REPORT INFORMATION
  Report Type: Spontaneous
  Country: US (occurrence: US)
  Receive Date: 20200807
  Receipt Date: 20200903
  Transmission Date: 20201103
  Serious: Yes (Other)
  Sender: FDA-Public Use
  Company Number: US-ASTRAZENECA-2020SE98555

PATIENT
  Sex: Female
  Weight: 145.2 kg

DRUGS (5)
  1. BYDUREON BCISE [Suspect]
     Active Substance: EXENATIDE
     Dosage: 2.0MG UNKNOWN
     Route: 065
  2. METHENAMINE HIPPURATE. [Concomitant]
     Active Substance: METHENAMINE HIPPURATE
  3. VOLTAREN [Concomitant]
     Active Substance: DICLOFENAC SODIUM
  4. AUGMENTIN [Concomitant]
     Active Substance: AMOXICILLIN\CLAVULANATE POTASSIUM
  5. IRON INFUSION [Concomitant]
     Active Substance: IRON

REACTIONS (10)
  - Injection site pain [Unknown]
  - Blood glucose increased [Unknown]
  - Injection site swelling [Unknown]
  - Device leakage [Unknown]
  - Visual impairment [Unknown]
  - Discomfort [Unknown]
  - Somnolence [Unknown]
  - Cataract [Unknown]
  - Injection site mass [Unknown]
  - Fatigue [Unknown]
